FAERS Safety Report 11081825 (Version 1)
Quarter: 2015Q2

REPORT INFORMATION
  Report Type: Spontaneous
  Country: US (occurrence: US)
  Receive Date: 20150501
  Receipt Date: 20150501
  Transmission Date: 20150821
  Serious: Yes (Other)
  Sender: FDA-Public Use
  Company Number: US-BAUSCH-BL-2015-012384

PATIENT
  Age: 81 Year
  Sex: Female

DRUGS (1)
  1. XENAZINE [Suspect]
     Active Substance: TETRABENAZINE
     Indication: HUNTINGTON^S DISEASE
     Dosage: 1 AND 1/2 TABLETS TWICE DAILY AND 1 TABLET IN THE AFTERNOON.
     Route: 048
     Dates: start: 201308

REACTIONS (1)
  - Choking [Unknown]

NARRATIVE: CASE EVENT DATE: 20150404
